FAERS Safety Report 6614626-8 (Version None)
Quarter: 2010Q1

REPORT INFORMATION
  Report Type: 
  Country: None (occurrence: None)
  Receive Date: 20100226
  Receipt Date: 20100216
  Transmission Date: 20100710
  Serious: Yes (Death)
  Sender: FDA-Public Use
  Company Number: 2010020036

PATIENT
  Age: 40 Year
  Sex: Male

DRUGS (10)
  1. ONSOLIS [Suspect]
     Indication: CANCER PAIN
     Dosage: 1600 MCG (400 MCG, 1 IN 6 HR), BU
     Route: 002
     Dates: start: 20091020
  2. FENTANYL-100 [Concomitant]
  3. VALIUM [Concomitant]
  4. TRAZODONE HCL [Concomitant]
  5. GABAPENTIN [Concomitant]
  6. PRILOSEC [Concomitant]
  7. ROXICODONE [Concomitant]
  8. COLACE (DOCUSATE) [Concomitant]
  9. LIDOCAINE [Concomitant]
  10. SENNA (SENNA) [Concomitant]

REACTIONS (2)
  - COLON CANCER [None]
  - MALIGNANT NEOPLASM PROGRESSION [None]
